FAERS Safety Report 10424100 (Version 2)
Quarter: 2014Q3

REPORT INFORMATION
  Report Type: Report from Study
  Country: US (occurrence: US)
  Receive Date: 20140902
  Receipt Date: 20140902
  Transmission Date: 20150326
  Serious: Yes (Hospitalization)
  Sender: FDA-Public Use
  Company Number: US-BAYER-2014-104347

PATIENT
  Age: 70 Year
  Sex: Male
  Weight: 94.5 kg

DRUGS (3)
  1. SORAFENIB (RAF KINASE INHIBITOR) [Suspect]
     Active Substance: SORAFENIB
     Indication: ACUTE MYELOID LEUKAEMIA
     Dosage: 200 MG
     Route: 048
     Dates: start: 20140630, end: 20140707
  2. BORTEZOMIB [Suspect]
     Active Substance: BORTEZOMIB
     Indication: ACUTE MYELOID LEUKAEMIA
     Dosage: 2.7 MG
     Route: 042
     Dates: start: 20140630, end: 20140703
  3. VORINOSTAT [Suspect]
     Active Substance: VORINOSTAT
     Indication: ACUTE MYELOID LEUKAEMIA
     Dosage: 100 MG
     Route: 048
     Dates: start: 20140630, end: 20140707

REACTIONS (4)
  - Septic shock [None]
  - Diarrhoea [Not Recovered/Not Resolved]
  - Klebsiella sepsis [Recovered/Resolved]
  - Streptococcus test positive [None]

NARRATIVE: CASE EVENT DATE: 20140707
